FAERS Safety Report 7038122-1 (Version None)
Quarter: 2010Q4

REPORT INFORMATION
  Report Type: 
  Country: None (occurrence: None)
  Receive Date: 20101011
  Receipt Date: 20101005
  Transmission Date: 20110411
  Serious: Yes (Life-Threatening, Hospitalization, Disabling)
  Sender: FDA-Public Use
  Company Number: PHHO2010US14160

PATIENT
  Sex: Male
  Weight: 49.72 kg

DRUGS (3)
  1. ZOLEDRONATE T29581+SOLINF [Suspect]
     Indication: OSTEOPOROSIS
     Dosage: 5MG ONCE A YEAR
     Route: 042
     Dates: start: 20061114
  2. CALCIUM [Concomitant]
     Indication: OSTEOPOROSIS
  3. VITAMIN D [Concomitant]
     Indication: OSTEOPOROSIS

REACTIONS (6)
  - ACUTE MYOCARDIAL INFARCTION [None]
  - CATHETERISATION CARDIAC [None]
  - CEREBROVASCULAR ACCIDENT [None]
  - CHEST PAIN [None]
  - COMA [None]
  - DISEASE PROGRESSION [None]
